FAERS Safety Report 4448406-9 (Version None)
Quarter: 2004Q3

REPORT INFORMATION
  Report Type: 
  Country: None (occurrence: None)
  Receive Date: 20040730
  Receipt Date: 20040324
  Transmission Date: 20050211
  Serious: Yes (Hospitalization)
  Sender: FDA-Public Use
  Company Number: 2004-03-1863

PATIENT
  Age: 62 Year
  Sex: Male

DRUGS (1)
  1. INTRON A [Suspect]
     Indication: SKIN CANCER
     Dosage: 5MIU 5XWK Q4W SUBCUTANEO
     Route: 058

REACTIONS (1)
  - DISORIENTATION [None]
